FAERS Safety Report 10331159 (Version 2)
Quarter: 2014Q3

REPORT INFORMATION
  Report Type: Spontaneous
  Country: JP (occurrence: JP)
  Receive Date: 20140722
  Receipt Date: 20140722
  Transmission Date: 20150326
  Serious: Yes (Hospitalization, Other)
  Sender: FDA-Public Use
  Company Number: JP-PFIZER INC-2014185547

PATIENT
  Age: 73 Year
  Sex: Male
  Weight: 50 kg

DRUGS (3)
  1. TOVIAZ [Suspect]
     Active Substance: FESOTERODINE FUMARATE
     Indication: MICTURITION URGENCY
  2. TOVIAZ [Suspect]
     Active Substance: FESOTERODINE FUMARATE
     Indication: HYPERTONIC BLADDER
     Dosage: 4 MG, DAILY
     Route: 048
     Dates: start: 20140616, end: 20140619
  3. URIEF [Concomitant]
     Active Substance: SILODOSIN
     Indication: DYSURIA
     Dosage: 4 MG, DAILY
     Route: 048
     Dates: start: 20140616

REACTIONS (2)
  - Urinary retention [Recovered/Resolved]
  - Prostatitis [Recovered/Resolved]

NARRATIVE: CASE EVENT DATE: 20140619
